FAERS Safety Report 6899762-3 (Version None)
Quarter: 2010Q3

REPORT INFORMATION
  Report Type: 
  Country: None (occurrence: None)
  Receive Date: 20100708
  Receipt Date: 20090818
  Transmission Date: 20110219
  Serious: Yes (Other)
  Sender: FDA-Public Use
  Company Number: 2009245457

PATIENT
  Age: 47 Year
  Sex: Female
  Weight: 59 kg

DRUGS (1)
  1. CHANTIX [Suspect]
     Indication: SMOKING CESSATION THERAPY
     Dosage: FREQUENCY: 2X/DAY, EVERYDAY;,ORAL
     Route: 048
     Dates: start: 20090518, end: 20090527

REACTIONS (3)
  - DEPRESSION [None]
  - HEADACHE [None]
  - SELF-INJURIOUS IDEATION [None]
